APPROVED DRUG PRODUCT: MOEXIPRIL HYDROCHLORIDE AND HYDROCHLOROTHIAZIDE
Active Ingredient: HYDROCHLOROTHIAZIDE; MOEXIPRIL HYDROCHLORIDE
Strength: 12.5MG;15MG
Dosage Form/Route: TABLET;ORAL
Application: A090718 | Product #002
Applicant: GLENMARK PHARMACEUTICALS LTD
Approved: Mar 17, 2010 | RLD: No | RS: No | Type: DISCN